FAERS Safety Report 20144829 (Version 1)
Quarter: 2021Q4

REPORT INFORMATION
  Report Type: Spontaneous
  Country: GB (occurrence: GB)
  Receive Date: 20211203
  Receipt Date: 20211203
  Transmission Date: 20220303
  Serious: Yes (Other)
  Sender: FDA-Public Use
  Company Number: GB-Hameln pharma plus gmbh-HAM20200400007

PATIENT
  Age: 21 Year
  Sex: Female

DRUGS (4)
  1. ONDANSETRON [Suspect]
     Active Substance: ONDANSETRON
     Indication: Chemical submission
     Dosage: UNK
     Route: 065
  2. PROPOFOL [Suspect]
     Active Substance: PROPOFOL
     Indication: Chemical submission
     Dosage: UNK
     Route: 065
  3. CYCLIZINE LACTATE [Suspect]
     Active Substance: CYCLIZINE LACTATE
     Indication: Chemical submission
     Dosage: UNK
     Route: 065
  4. CYCLIZINE LACTATE [Suspect]
     Active Substance: CYCLIZINE LACTATE
     Dosage: UNK
     Route: 065
     Dates: start: 20181214

REACTIONS (3)
  - Victim of sexual abuse [Unknown]
  - Victim of chemical submission [Unknown]
  - Intentional product misuse [Unknown]

NARRATIVE: CASE EVENT DATE: 20181214
